FAERS Safety Report 17623260 (Version 1)
Quarter: 2020Q2

REPORT INFORMATION
  Report Type: Spontaneous
  Country: US (occurrence: US)
  Receive Date: 20200403
  Receipt Date: 20200403
  Transmission Date: 20200713
  Serious: Yes (Other)
  Sender: FDA-Public Use
  Company Number: US-BIOMARINAP-US-2020-129399

PATIENT
  Age: 36 Year
  Sex: Male

DRUGS (1)
  1. KUVAN [Suspect]
     Active Substance: SAPROPTERIN DIHYDROCHLORIDE
     Indication: PHENYLKETONURIA
     Dosage: 1300 MILLIGRAM, QD
     Route: 048
     Dates: start: 20170222

REACTIONS (3)
  - Seizure [Unknown]
  - Schizophrenia [Unknown]
  - Weight increased [Unknown]

NARRATIVE: CASE EVENT DATE: 202001
